FAERS Safety Report 5113769-8 (Version None)
Quarter: 2006Q3

REPORT INFORMATION
  Report Type: 
  Country: None (occurrence: None)
  Receive Date: 20060920
  Receipt Date: 20060907
  Transmission Date: 20061208
  Serious: Yes (Life-Threatening, Hospitalization)
  Sender: FDA-Public Use
  Company Number: 2005138951

PATIENT
  Age: 69 Year
  Sex: Male
  Weight: 57.8 kg

DRUGS (11)
  1. SUTENT [Suspect]
     Indication: GASTROINTESTINAL STROMAL TUMOUR
     Dosage: 50 MG (50 MG, 1 IN 1 D), ORAL
     Route: 048
     Dates: start: 20050628, end: 20051003
  2. IMIPENEM (IMIPENEM) [Suspect]
     Indication: PERIANAL ABSCESS
     Dates: start: 20051007, end: 20051012
  3. CILASTATIN SODIUM (CILASTATIN SODIUM) [Suspect]
     Indication: PERIANAL ABSCESS
     Dates: start: 20051007, end: 20051012
  4. CLINDA PHOSPHATE [Suspect]
     Indication: PERIANAL ABSCESS
     Dates: start: 20051012, end: 20051023
  5. CEFEPIME HYDROCHLORIDE (CEFIPIME HYDROCHLORIDE) [Suspect]
     Indication: PERIANAL ABSCESS
     Dates: start: 20051012, end: 20051023
  6. LOXOPROFEN (LOXOPROFEN) [Concomitant]
  7. ALLOPURINOL [Concomitant]
  8. SUCRALFATE [Concomitant]
  9. MAGNESIUM OXIDE (MAGNESIUM OXIDE) [Concomitant]
  10. DIFLUCORTOLONE VALERATE (DIFLUCORTOLONE VALERATE) [Concomitant]
  11. LIDOCAINE [Concomitant]

REACTIONS (23)
  - ASCITES [None]
  - BLOOD ALBUMIN DECREASED [None]
  - BLOOD CREATININE INCREASED [None]
  - BLOOD PRESSURE INCREASED [None]
  - BLOOD UREA INCREASED [None]
  - DECREASED APPETITE [None]
  - DISEASE PROGRESSION [None]
  - DISSEMINATED INTRAVASCULAR COAGULATION [None]
  - DRUG TOXICITY [None]
  - HAEMOLYSIS [None]
  - HEART RATE DECREASED [None]
  - INFECTION [None]
  - NEUTROPHIL COUNT DECREASED [None]
  - OXYGEN SATURATION DECREASED [None]
  - PAIN [None]
  - PERIANAL ABSCESS [None]
  - PERIPROCTITIS [None]
  - PLEURAL EFFUSION [None]
  - PROTEIN TOTAL DECREASED [None]
  - SCAR PAIN [None]
  - SEPSIS [None]
  - SUBILEUS [None]
  - WHITE BLOOD CELL COUNT DECREASED [None]
